FAERS Safety Report 23234999 (Version 1)
Quarter: 2023Q4

REPORT INFORMATION
  Report Type: Spontaneous
  Country: US (occurrence: US)
  Receive Date: 20231128
  Receipt Date: 20231128
  Transmission Date: 20240110
  Serious: No
  Sender: FDA-Public Use
  Company Number: US-PFIZER INC-202300404836

PATIENT
  Age: 40 Year
  Sex: Female

DRUGS (9)
  1. PAXLOVID [Suspect]
     Active Substance: NIRMATRELVIR\RITONAVIR
     Indication: COVID-19 treatment
     Dates: start: 20231114, end: 20231119
  2. BENLYSTA [Concomitant]
     Active Substance: BELIMUMAB
     Dates: start: 20230201
  3. PLAQUENIL [Concomitant]
     Active Substance: HYDROXYCHLOROQUINE SULFATE
  4. METOPROLOL [Concomitant]
     Active Substance: METOPROLOL
  5. METHYLPREDNISOLONE [Concomitant]
     Active Substance: METHYLPREDNISOLONE
  6. MEMANTINE [Concomitant]
     Active Substance: MEMANTINE
  7. DOXYCYCLINE [Concomitant]
     Active Substance: DOXYCYCLINE
  8. DEXILANT [Concomitant]
     Active Substance: DEXLANSOPRAZOLE
  9. QULIPTA [Concomitant]
     Active Substance: ATOGEPANT

REACTIONS (2)
  - COVID-19 [Not Recovered/Not Resolved]
  - Disease recurrence [Not Recovered/Not Resolved]

NARRATIVE: CASE EVENT DATE: 20231122
